FAERS Safety Report 15020579 (Version 1)
Quarter: 2018Q2

REPORT INFORMATION
  Report Type: Spontaneous
  Country: US (occurrence: US)
  Receive Date: 20180618
  Receipt Date: 20180618
  Transmission Date: 20180711
  Serious: No
  Sender: FDA-Public Use
  Company Number: US-MALLINCKRODT-T201704263

PATIENT
  Sex: Female
  Weight: 82 kg

DRUGS (1)
  1. HYDROCODONE/ACETAMINOPHEN [Suspect]
     Active Substance: ACETAMINOPHEN\HYDROCODONE
     Indication: PAIN
     Dosage: 10/325MG, ONE TABLET FOUR TIMES DAILY
     Route: 048

REACTIONS (9)
  - Malaise [Unknown]
  - Vomiting [Unknown]
  - Irritability [Unknown]
  - Feeling jittery [Unknown]
  - Nervousness [Unknown]
  - Feeling abnormal [Unknown]
  - Nausea [Unknown]
  - Headache [Unknown]
  - Drug ineffective [Unknown]
